FAERS Safety Report 22623193 (Version 1)
Quarter: 2023Q2

REPORT INFORMATION
  Report Type: Report from Study
  Country: US (occurrence: US)
  Receive Date: 20230621
  Receipt Date: 20230621
  Transmission Date: 20230722
  Serious: Yes (Other)
  Sender: FDA-Public Use
  Company Number: US-ABBVIE-5297486

PATIENT
  Sex: Male

DRUGS (1)
  1. HUMIRA [Suspect]
     Active Substance: ADALIMUMAB
     Indication: Product used for unknown indication
     Route: 058

REACTIONS (5)
  - Foot operation [Unknown]
  - Therapeutic product effect decreased [Unknown]
  - Skin fissures [Recovering/Resolving]
  - Skin haemorrhage [Recovered/Resolved]
  - Ulcer [Unknown]
